FAERS Safety Report 17535748 (Version 2)
Quarter: 2020Q3

REPORT INFORMATION
  Report Type: Report from Study
  Country: None (occurrence: US)
  Receive Date: 20200312
  Receipt Date: 20200706
  Transmission Date: 20201102
  Serious: Yes (Other)
  Sender: FDA-Public Use
  Company Number: US-ABBVIE-20K-163-3304822-00

PATIENT
  Sex: Male

DRUGS (2)
  1. VENCLEXTA [Suspect]
     Active Substance: VENETOCLAX
     Indication: ACUTE MYELOID LEUKAEMIA
     Route: 048
     Dates: start: 20200222, end: 2020
  2. VENCLEXTA [Suspect]
     Active Substance: VENETOCLAX
     Route: 048
     Dates: start: 202002

REACTIONS (13)
  - Blood count abnormal [Unknown]
  - Decreased activity [Unknown]
  - Fatigue [Unknown]
  - Neutrophil count decreased [Unknown]
  - Pruritus [Unknown]
  - Haemorrhoids [Unknown]
  - Dyspnoea [Unknown]
  - Epistaxis [Unknown]
  - Pyrexia [Unknown]
  - Constipation [Recovering/Resolving]
  - Emotional disorder [Unknown]
  - White blood cell count decreased [Unknown]
  - Decreased appetite [Unknown]

NARRATIVE: CASE EVENT DATE: 2020
